FAERS Safety Report 11851887 (Version 1)
Quarter: 2015Q4

REPORT INFORMATION
  Report Type: Spontaneous
  Country: DK (occurrence: FR)
  Receive Date: 20151218
  Receipt Date: 20151218
  Transmission Date: 20160305
  Serious: Yes (Death, Congenital Anomaly)
  Sender: FDA-Public Use
  Company Number: FR-FRI-1000081670

PATIENT
  Age: 0 Year
  Sex: Female
  Weight: 1.82 kg

DRUGS (1)
  1. ESCITALOPRAM [Suspect]
     Active Substance: ESCITALOPRAM OXALATE
     Indication: PRODUCT USED FOR UNKNOWN INDICATION
     Route: 064

REACTIONS (2)
  - Holoprosencephaly [Fatal]
  - Exposure during pregnancy [Fatal]

NARRATIVE: CASE EVENT DATE: 20120607
